FAERS Safety Report 12902769 (Version 1)
Quarter: 2016Q4

REPORT INFORMATION
  Report Type: Spontaneous
  Country: US (occurrence: US)
  Receive Date: 20161102
  Receipt Date: 20161102
  Transmission Date: 20170207
  Serious: No
  Sender: FDA-Public Use
  Company Number: US-JNJFOC-20160903719

PATIENT
  Sex: Male

DRUGS (2)
  1. REMICADE [Suspect]
     Active Substance: INFLIXIMAB
     Indication: COLITIS ULCERATIVE
     Route: 042
     Dates: start: 2009
  2. REMICADE [Suspect]
     Active Substance: INFLIXIMAB
     Indication: COLITIS ULCERATIVE
     Route: 042
     Dates: end: 2016

REACTIONS (7)
  - Weight fluctuation [Unknown]
  - Off label use [Unknown]
  - Drug level decreased [Unknown]
  - Malaise [Unknown]
  - Drug effect decreased [Unknown]
  - Colitis ulcerative [Unknown]
  - Product use issue [Unknown]
